FAERS Safety Report 8620341-1 (Version None)
Quarter: 2012Q3

REPORT INFORMATION
  Report Type: 
  Country: None (occurrence: None)
  Receive Date: 20120824
  Receipt Date: 20120817
  Transmission Date: 20120928
  Serious: Yes (Other)
  Sender: FDA-Public Use
  Company Number: CN-ABBOTT-12P-035-0970629-00

PATIENT
  Age: 3 Year
  Sex: Male

DRUGS (3)
  1. DEPAKENE [Suspect]
     Dosage: 7-8 ML
     Route: 048
     Dates: start: 20120501, end: 20120601
  2. DEPAKENE [Suspect]
     Indication: EPILEPSY
     Route: 050
     Dates: start: 20120701
  3. DEPAKENE [Suspect]
     Route: 048
     Dates: start: 20120701, end: 20120701

REACTIONS (4)
  - EPILEPSY [None]
  - PALLOR [None]
  - FALL [None]
  - TOOTHACHE [None]
